FAERS Safety Report 24213867 (Version 1)
Quarter: 2024Q3

REPORT INFORMATION
  Report Type: Spontaneous
  Country: FR (occurrence: None)
  Receive Date: 20240815
  Receipt Date: 20240815
  Transmission Date: 20241017
  Serious: Yes (Hospitalization)
  Sender: ASTRAZENECA
  Company Number: 2024A179150

PATIENT
  Age: 81 Year
  Sex: Male
  Weight: 58.7 kg

DRUGS (7)
  1. DAPAGLIFLOZIN [Suspect]
     Active Substance: DAPAGLIFLOZIN
     Indication: Cardiac failure
     Dosage: LONG COURS
  2. BISOPROLOL [Suspect]
     Active Substance: BISOPROLOL\BISOPROLOL FUMARATE
     Indication: Ischaemic cardiomyopathy
     Dates: end: 20240229
  3. OXAZEPAM [Suspect]
     Active Substance: OXAZEPAM
     Indication: Dementia Alzheimer^s type
     Route: 048
  4. ALFUZOSIN HYDROCHLORIDE [Suspect]
     Active Substance: ALFUZOSIN HYDROCHLORIDE
     Indication: Benign prostatic hyperplasia
     Route: 048
  5. FUROSEMIDE [Suspect]
     Active Substance: FUROSEMIDE
     Indication: Cardiac failure
     Route: 048
     Dates: end: 20240229
  6. LOXAPINE [Suspect]
     Active Substance: LOXAPINE
     Indication: Dementia Alzheimer^s type
     Route: 048
     Dates: end: 20240229
  7. FINASTERIDE [Suspect]
     Active Substance: FINASTERIDE

REACTIONS (3)
  - Disturbance in attention [Recovering/Resolving]
  - Dehydration [Recovering/Resolving]
  - Bradycardia [Recovering/Resolving]

NARRATIVE: CASE EVENT DATE: 20240229
